FAERS Safety Report 9308076 (Version 1)
Quarter: 2013Q2

REPORT INFORMATION
  Report Type: Report from Study
  Country: US (occurrence: US)
  Receive Date: 20130524
  Receipt Date: 20130524
  Transmission Date: 20140414
  Serious: Yes (Hospitalization, Other)
  Sender: FDA-Public Use
  Company Number: US-ABBOTT-13P-163-1092277-00

PATIENT
  Age: 47 Year
  Sex: Male

DRUGS (5)
  1. HUMIRA [Suspect]
     Indication: CROHN^S DISEASE
     Dates: start: 20121026, end: 20121204
  2. PHENERGAN [Concomitant]
     Indication: NAUSEA
  3. LORTAB [Concomitant]
     Indication: PAIN
  4. IRON [Concomitant]
     Indication: CROHN^S DISEASE
  5. DILAUDID [Concomitant]
     Indication: PAIN

REACTIONS (1)
  - Gastrointestinal stoma complication [Not Recovered/Not Resolved]
